FAERS Safety Report 7833473-2 (Version None)
Quarter: 2011Q4

REPORT INFORMATION
  Report Type: 
  Country: None (occurrence: None)
  Receive Date: 20111024
  Receipt Date: 20111018
  Transmission Date: 20120403
  Serious: Yes (Death)
  Sender: FDA-Public Use
  Company Number: JP-ASTELLAS-2011JP007428

PATIENT
  Age: 54 Year
  Sex: Male

DRUGS (4)
  1. PREDNISOLONE [Concomitant]
     Dosage: 5 MG, BID
     Route: 048
  2. ADALIMUMAB [Concomitant]
     Route: 048
  3. METHOTREXATE [Concomitant]
     Route: 048
  4. PROGRAF [Suspect]
     Indication: RHEUMATOID ARTHRITIS
     Dosage: UNK
     Route: 048

REACTIONS (2)
  - RESPIRATORY TRACT INFECTION [None]
  - HEPATITIS FULMINANT [None]
